FAERS Safety Report 4283425-7 (Version None)
Quarter: 2004Q1

REPORT INFORMATION
  Report Type: 
  Country: None (occurrence: None)
  Receive Date: 20040129
  Receipt Date: 20040116
  Transmission Date: 20041129
  Serious: Yes (Death)
  Sender: FDA-Public Use
  Company Number: 2004AP00224

PATIENT
  Age: 65 Year
  Sex: Female

DRUGS (2)
  1. NOLVADEX [Suspect]
     Indication: BREAST CANCER
  2. FLUOROURACIL [Suspect]

REACTIONS (10)
  - ACUTE MYELOID LEUKAEMIA [None]
  - CARDIAC FAILURE [None]
  - CHROMOSOME ABNORMALITY [None]
  - DISEASE PROGRESSION [None]
  - DRUG INEFFECTIVE [None]
  - LYMPHADENOPATHY [None]
  - MYELODYSPLASTIC SYNDROME [None]
  - PANCYTOPENIA [None]
  - PNEUMONIA [None]
  - SKIN ULCER [None]
